FAERS Safety Report 5938605-9 (Version None)
Quarter: 2008Q4

REPORT INFORMATION
  Report Type: 
  Country: None (occurrence: None)
  Receive Date: 20081103
  Receipt Date: 20081030
  Transmission Date: 20090506
  Serious: Yes (Death)
  Sender: FDA-Public Use
  Company Number: PHHO2007MX11314

PATIENT
  Age: 82 Year
  Sex: Female

DRUGS (1)
  1. DIOVAN HCT [Suspect]
     Indication: HYPERTENSION
     Dates: start: 20060601

REACTIONS (1)
  - CARDIAC ARREST [None]
